FAERS Safety Report 5657383-4 (Version None)
Quarter: 2008Q1

REPORT INFORMATION
  Report Type: 
  Country: None (occurrence: None)
  Receive Date: 20080310
  Receipt Date: 20080303
  Transmission Date: 20080703
  Serious: Yes (Hospitalization)
  Sender: FDA-Public Use
  Company Number: PHBS2006JP18563

PATIENT
  Age: 17 Year
  Sex: Female

DRUGS (6)
  1. TEGRETOL [Suspect]
     Indication: OBSESSIVE-COMPULSIVE DISORDER
     Dosage: 400 MG/DAY
     Route: 048
     Dates: start: 20051111, end: 20060116
  2. FLUVOXAMINE MALEATE [Concomitant]
     Route: 065
     Dates: end: 20060116
  3. ZYPREXA [Concomitant]
     Dates: end: 20060116
  4. DESYREL [Concomitant]
     Dates: end: 20060116
  5. SEROQUEL [Concomitant]
     Dates: end: 20060116
  6. PROMETHAZINE [Concomitant]
     Route: 065
     Dates: end: 20060116

REACTIONS (19)
  - ALANINE AMINOTRANSFERASE INCREASED [None]
  - ASPARTATE AMINOTRANSFERASE INCREASED [None]
  - BASOPHIL COUNT INCREASED [None]
  - BLOOD LACTATE DEHYDROGENASE INCREASED [None]
  - C-REACTIVE PROTEIN INCREASED [None]
  - DRUG RASH WITH EOSINOPHILIA AND SYSTEMIC SYMPTOMS [None]
  - EMOTIONAL DISORDER [None]
  - ERYTHEMA [None]
  - GAMMA-GLUTAMYLTRANSFERASE INCREASED [None]
  - HEPATIC FUNCTION ABNORMAL [None]
  - HUMAN HERPES VIRUS 6 SEROLOGY POSITIVE [None]
  - LYMPHADENOPATHY [None]
  - LYMPHOCYTE STIMULATION TEST POSITIVE [None]
  - MONOCYTE COUNT INCREASED [None]
  - OEDEMA [None]
  - PSYCHIATRIC SYMPTOM [None]
  - PYREXIA [None]
  - RASH [None]
  - WHITE BLOOD CELL COUNT INCREASED [None]
